FAERS Safety Report 16067143 (Version 1)
Quarter: 2019Q1

REPORT INFORMATION
  Report Type: Report from Study
  Country: US (occurrence: US)
  Receive Date: 20190313
  Receipt Date: 20190313
  Transmission Date: 20190418
  Serious: Yes (Death, Hospitalization, Other)
  Sender: FDA-Public Use
  Company Number: US-JNJFOC-20190127539

PATIENT
  Age: 92 Year
  Sex: Male

DRUGS (2)
  1. LOSARTAN. [Concomitant]
     Active Substance: LOSARTAN
  2. IMBRUVICA [Suspect]
     Active Substance: IBRUTINIB
     Indication: CHRONIC LYMPHOCYTIC LEUKAEMIA
     Route: 048
     Dates: start: 20180913

REACTIONS (10)
  - Respiratory failure [Fatal]
  - Pulmonary oedema [Fatal]
  - Compression fracture [Unknown]
  - Fall [Unknown]
  - Malnutrition [Unknown]
  - Mental status changes [Unknown]
  - Metabolic encephalopathy [Unknown]
  - Hyponatraemia [Unknown]
  - Pneumonia [Fatal]
  - Dysphagia [Unknown]

NARRATIVE: CASE EVENT DATE: 20190101
